FAERS Safety Report 25028838 (Version 3)
Quarter: 2025Q2

REPORT INFORMATION
  Report Type: Spontaneous
  Country: JP (occurrence: JP)
  Receive Date: 20250302
  Receipt Date: 20250409
  Transmission Date: 20250716
  Serious: Yes (Death, Other)
  Sender: MERCK SHARP AND DOHME
  Company Number: JP-009507513-2257680

PATIENT
  Sex: Female

DRUGS (1)
  1. KEYTRUDA [Suspect]
     Active Substance: PEMBROLIZUMAB
     Indication: Cervix carcinoma
     Route: 041
     Dates: start: 202412, end: 202502

REACTIONS (4)
  - Sepsis [Fatal]
  - Abdominal adhesions [Unknown]
  - Ovarian adhesion [Unknown]
  - Myelosuppression [Unknown]

NARRATIVE: CASE EVENT DATE: 20250201
